FAERS Safety Report 7113536-X (Version None)
Quarter: 2010Q4

REPORT INFORMATION
  Report Type: 
  Country: None (occurrence: None)
  Receive Date: 20101119
  Receipt Date: 20101108
  Transmission Date: 20110411
  Serious: No
  Sender: FDA-Public Use
  Company Number: US-PFIZER INC-2010145740

PATIENT
  Sex: Female

DRUGS (3)
  1. EFFEXOR XR [Suspect]
     Indication: PANIC ATTACK
     Dosage: 150 MG ONCE A DAY
     Route: 048
  2. EFFEXOR XR [Suspect]
     Dosage: 37.5 MG, 1X/DAY
     Route: 048
     Dates: end: 20101105
  3. PROZAC [Suspect]
     Dosage: 10 MG DAILY
     Dates: start: 20101106

REACTIONS (6)
  - ANGER [None]
  - CRYING [None]
  - FATIGUE [None]
  - INFLUENZA [None]
  - NAUSEA [None]
  - WITHDRAWAL SYNDROME [None]
